FAERS Safety Report 4445721-X (Version None)
Quarter: 2004Q3

REPORT INFORMATION
  Report Type: 
  Country: None (occurrence: None)
  Receive Date: 20040903
  Receipt Date: 20040824
  Transmission Date: 20050211
  Serious: Yes (Other)
  Sender: FDA-Public Use
  Company Number: 04-329-0092

PATIENT
  Age: 52 Year
  Sex: Female

DRUGS (2)
  1. DOXORUBICIN, UNKNOWN STRENGTH, BEN VENUE LABS [Suspect]
     Indication: BREAST CANCER
     Dosage: 20MG IV OF INTENDED 60MG
     Dates: start: 20040818
  2. CYCLOPHOSPHAMIDE [Concomitant]

REACTIONS (4)
  - ERYTHEMA [None]
  - PRURITUS [None]
  - UNEVALUABLE EVENT [None]
  - URTICARIA [None]
